FAERS Safety Report 25840584 (Version 1)
Quarter: 2025Q3

REPORT INFORMATION
  Report Type: Spontaneous
  Country: US (occurrence: US)
  Receive Date: 20250924
  Receipt Date: 20250924
  Transmission Date: 20251021
  Serious: Yes (Other)
  Sender: OBAGI MEDICAL
  Company Number: US-OBAGI-2025OBAAE000085

PATIENT

DRUGS (7)
  1. UNAPPROVED DRUG COSMETIC PRODUCTS [Suspect]
     Active Substance: UNAPPROVED DRUG COSMETIC PRODUCTS
     Indication: Product used for unknown indication
  2. COSMETICS [Suspect]
     Active Substance: COSMETICS
     Indication: Product used for unknown indication
  3. OBAGI MEDICAL PHYSICAL DEFENSE BROAD SPECTRUM MINERAL SUNSCREEN SPF 50 [Suspect]
     Active Substance: TITANIUM DIOXIDE\ZINC OXIDE
     Indication: Product used for unknown indication
  4. COSMETICS [Suspect]
     Active Substance: COSMETICS
     Indication: Product used for unknown indication
  5. UNAPPROVED DRUG COSMETIC PRODUCTS [Suspect]
     Active Substance: UNAPPROVED DRUG COSMETIC PRODUCTS
     Indication: Product used for unknown indication
  6. UNAPPROVED DRUG COSMETIC PRODUCTS [Suspect]
     Active Substance: UNAPPROVED DRUG COSMETIC PRODUCTS
     Indication: Product used for unknown indication
  7. COSMETICS [Suspect]
     Active Substance: COSMETICS
     Indication: Product used for unknown indication

REACTIONS (4)
  - Furuncle [Unknown]
  - Cyst [Unknown]
  - Swelling face [Unknown]
  - Erythema [Unknown]
